FAERS Safety Report 5019247-9 (Version None)
Quarter: 2006Q2

REPORT INFORMATION
  Report Type: 
  Country: None (occurrence: None)
  Receive Date: 20060531
  Receipt Date: 20060518
  Transmission Date: 20061013
  Serious: Yes (Hospitalization)
  Sender: FDA-Public Use
  Company Number: 2006EU001613

PATIENT
  Age: 42 Year
  Sex: Female

DRUGS (2)
  1. PROGRAF [Suspect]
     Indication: LIVER TRANSPLANT
     Dosage: ORAL
     Route: 048
     Dates: start: 20050715
  2. NEXIUM [Suspect]
     Indication: LIVER TRANSPLANT
     Dosage: 20 MG, UID/QD, ORAL
     Route: 048

REACTIONS (10)
  - ABDOMINAL PAIN [None]
  - ASTHENOPIA [None]
  - DRUG INTERACTION [None]
  - DRY MOUTH [None]
  - DYSURIA [None]
  - HYPERHIDROSIS [None]
  - MIGRAINE [None]
  - OEDEMA [None]
  - OVERDOSE [None]
  - TREMOR [None]
